FAERS Safety Report 6173993-2 (Version None)
Quarter: 2009Q2

REPORT INFORMATION
  Report Type: 
  Country: None (occurrence: None)
  Receive Date: 20090430
  Receipt Date: 20080708
  Transmission Date: 20091009
  Serious: No
  Sender: FDA-Public Use
  Company Number: US-ASTRAZENECA-2005UW03033

PATIENT
  Age: 79 Year
  Sex: Male
  Weight: 88.5 kg

DRUGS (6)
  1. NEXIUM [Suspect]
     Indication: EROSIVE OESOPHAGITIS
     Route: 048
     Dates: start: 20060101, end: 20060101
  2. NEXIUM [Suspect]
     Indication: GASTROOESOPHAGEAL REFLUX DISEASE
     Route: 048
     Dates: start: 20060101, end: 20060101
  3. NEXIUM [Suspect]
     Route: 048
     Dates: start: 20080101
  4. NEXIUM [Suspect]
     Route: 048
     Dates: start: 20080101
  5. ATENOLOL [Concomitant]
  6. COZAAR [Concomitant]

REACTIONS (5)
  - BLOOD THYROID STIMULATING HORMONE INCREASED [None]
  - CONFUSIONAL STATE [None]
  - LETHARGY [None]
  - OROPHARYNGEAL PAIN [None]
  - UVULAR SPASM [None]
